FAERS Safety Report 18956582 (Version 1)
Quarter: 2021Q1

REPORT INFORMATION
  Report Type: Spontaneous
  Country: LT (occurrence: LT)
  Receive Date: 20210301
  Receipt Date: 20210301
  Transmission Date: 20210420
  Serious: Yes (Hospitalization)
  Sender: FDA-Public Use
  Company Number: LT-LUPIN PHARMACEUTICALS INC.-2021-02320

PATIENT
  Age: 34 Year
  Sex: Female

DRUGS (9)
  1. METOPROLOL. [Suspect]
     Active Substance: METOPROLOL
     Indication: TACHYCARDIA FOETAL
     Dosage: 50 MILLIGRAM
     Route: 048
  2. PROPAFENONE. [Suspect]
     Active Substance: PROPAFENONE
     Indication: TACHYCARDIA FOETAL
     Dosage: 140 MILLIGRAM
     Route: 042
  3. PROPAFENONE. [Suspect]
     Active Substance: PROPAFENONE
     Dosage: 150 MILLIGRAM
     Route: 048
  4. SOTALOL. [Suspect]
     Active Substance: SOTALOL
     Indication: TACHYCARDIA FOETAL
     Dosage: 80 MILLIGRAM (THREE TIMES A DAY)
     Route: 048
  5. OSELTAMIVIR [Suspect]
     Active Substance: OSELTAMIVIR
     Indication: INFLUENZA
     Dosage: UNK
     Route: 065
  6. DIGOXIN. [Suspect]
     Active Substance: DIGOXIN
     Dosage: 0.25 UNK
     Route: 042
  7. DEXAMETHASONE. [Suspect]
     Active Substance: DEXAMETHASONE
     Indication: MATERNAL THERAPY TO ENHANCE FOETAL LUNG MATURITY
     Dosage: 12 MILLIGRAM
     Route: 065
  8. DIGOXIN. [Suspect]
     Active Substance: DIGOXIN
     Indication: TACHYCARDIA FOETAL
     Dosage: 0.25 MILLIGRAM (REPEATED AFTER 2.5 HOURS)
     Route: 065
  9. DIGOXIN. [Suspect]
     Active Substance: DIGOXIN
     Dosage: 0.25 MILLIGRAM, QD
     Route: 048

REACTIONS (1)
  - Exposure during pregnancy [Unknown]
